FAERS Safety Report 21402210 (Version 1)
Quarter: 2022Q4

REPORT INFORMATION
  Report Type: Spontaneous
  Country: US (occurrence: US)
  Receive Date: 20221003
  Receipt Date: 20221003
  Transmission Date: 20230113
  Serious: No
  Sender: FDA-Public Use
  Company Number: US-BRISTOL-MYERS SQUIBB COMPANY-2022-114553

PATIENT
  Age: 59 Year
  Sex: Male

DRUGS (1)
  1. REVLIMID [Suspect]
     Active Substance: LENALIDOMIDE
     Indication: Plasma cell myeloma
     Dosage: FREQ: TAKE ONE WHOLE CAPSULE BY MOUTH WITH WATER AT THE SAME TIME EACH DAY ON DAYS 1-21 OF A 28 DAY
     Route: 048

REACTIONS (3)
  - Skin irritation [Unknown]
  - Pruritus [Unknown]
  - Product dose omission issue [Unknown]
